FAERS Safety Report 18461529 (Version 2)
Quarter: 2020Q4

REPORT INFORMATION
  Report Type: Spontaneous
  Country: IT (occurrence: IT)
  Receive Date: 20201104
  Receipt Date: 20201209
  Transmission Date: 20210114
  Serious: No
  Sender: FDA-Public Use
  Company Number: IT-AMGEN-ITASP2020174624

PATIENT
  Age: 47 Year
  Sex: Male

DRUGS (1)
  1. AMGEVITA [Suspect]
     Active Substance: ADALIMUMAB
     Indication: PSORIATIC ARTHROPATHY
     Dosage: 1 DOSAGE FORM, CYCLICAL
     Route: 058
     Dates: start: 20190902, end: 20200825

REACTIONS (3)
  - Arthritis [Recovering/Resolving]
  - Product substitution issue [Recovering/Resolving]
  - Psoriasis [Recovering/Resolving]

NARRATIVE: CASE EVENT DATE: 20200301
